FAERS Safety Report 5056786-9 (Version None)
Quarter: 2006Q2

REPORT INFORMATION
  Report Type: 
  Country: None (occurrence: None)
  Receive Date: 20060616
  Receipt Date: 20060508
  Transmission Date: 20061013
  Serious: No
  Sender: FDA-Public Use
  Company Number: 2006US001050

PATIENT
  Age: 84 Year
  Sex: Female

DRUGS (6)
  1. VESICARE [Suspect]
     Indication: WHEELCHAIR USER
     Dosage: 5 MG, ORAL
     Route: 048
     Dates: start: 20050101
  2. COMPAZINE (PROCHLORPHERAZINE EDISYLATE) [Concomitant]
  3. CARTIA (DILTIAZEM HYDROCHLORIDE) [Concomitant]
  4. VICODIN [Concomitant]
  5. LORAZEPAM [Concomitant]
  6. PRILOSEC [Concomitant]

REACTIONS (1)
  - DRUG INEFFECTIVE [None]
